FAERS Safety Report 12156242 (Version 2)
Quarter: 2016Q2

REPORT INFORMATION
  Report Type: Spontaneous
  Country: US (occurrence: US)
  Receive Date: 20160307
  Receipt Date: 20160505
  Transmission Date: 20160815
  Serious: Yes (Other)
  Sender: FDA-Public Use
  Company Number: US-BAYER-2016-044052

PATIENT
  Age: 24 Year
  Sex: Female
  Weight: 77.55 kg

DRUGS (1)
  1. MIRENA [Suspect]
     Active Substance: LEVONORGESTREL
     Indication: CONTRACEPTION
     Dosage: 20 MCG/24HR, CONT
     Route: 015
     Dates: start: 20131121, end: 20160301

REACTIONS (3)
  - Abdominal pain [Recovered/Resolved]
  - Device dislocation [Recovered/Resolved]
  - Flank pain [None]

NARRATIVE: CASE EVENT DATE: 20150211
